FAERS Safety Report 24046169 (Version 1)
Quarter: 2024Q3

REPORT INFORMATION
  Report Type: Spontaneous
  Country: ID (occurrence: ID)
  Receive Date: 20240703
  Receipt Date: 20240703
  Transmission Date: 20241017
  Serious: Yes (Hospitalization)
  Sender: MYLAN
  Company Number: ID-MYLANLABS-2024M1061483

PATIENT
  Age: 3 Month
  Sex: Female

DRUGS (6)
  1. PHENYTOIN [Suspect]
     Active Substance: PHENYTOIN
     Indication: Myoclonic epilepsy
     Dosage: 5 MILLIGRAM/KILOGRAM, QD
     Route: 065
  2. PHENYTOIN [Suspect]
     Active Substance: PHENYTOIN
     Indication: Generalised tonic-clonic seizure
  3. CLONAZEPAM [Concomitant]
     Active Substance: CLONAZEPAM
     Indication: Myoclonic epilepsy
     Dosage: 0.01 MILLIGRAM/KILOGRAM, QD (DOSE ADJUSTMENT)
     Route: 065
  4. CLONAZEPAM [Concomitant]
     Active Substance: CLONAZEPAM
     Indication: Generalised tonic-clonic seizure
  5. VALPROIC ACID [Concomitant]
     Active Substance: VALPROIC ACID
     Indication: Myoclonic epilepsy
     Dosage: 29 MILLIGRAM/KILOGRAM, QD (DOSE ADJUSTMENT)
     Route: 065
  6. VALPROIC ACID [Concomitant]
     Active Substance: VALPROIC ACID
     Indication: Generalised tonic-clonic seizure

REACTIONS (1)
  - Drug ineffective [Unknown]
